FAERS Safety Report 13440226 (Version 12)
Quarter: 2019Q1

REPORT INFORMATION
  Report Type: Report from Study
  Country: JP (occurrence: JP)
  Receive Date: 20170413
  Receipt Date: 20190122
  Transmission Date: 20190417
  Serious: Yes (Death, Hospitalization, Other)
  Sender: FDA-Public Use
  Company Number: JP-AMGEN-JPNCT2016174173

PATIENT
  Age: 67 Year
  Sex: Male
  Weight: 59.7 kg

DRUGS (24)
  1. OXALIPLATIN. [Suspect]
     Active Substance: OXALIPLATIN
     Indication: COLON CANCER
     Dosage: 140 MG, Q2WK
     Route: 041
     Dates: start: 20161019, end: 20161019
  2. DABIGATRAN ETEXILATE [Suspect]
     Active Substance: DABIGATRAN ETEXILATE
     Dosage: 150 MG, BID
     Route: 048
     Dates: start: 20161227
  3. CALCIUM LEVOFOLINATE [Suspect]
     Active Substance: LEVOLEUCOVORIN CALCIUM
     Indication: COLON CANCER
     Dosage: 325 MG, Q2WK
     Route: 041
     Dates: start: 20161019, end: 20161019
  4. PANITUMUMAB [Suspect]
     Active Substance: PANITUMUMAB
     Indication: COLON CANCER
     Dosage: 350 MG, Q2WK
     Route: 041
     Dates: start: 20161019, end: 20170201
  5. FLUOROURACIL. [Suspect]
     Active Substance: FLUOROURACIL
     Dosage: 3270 MG, Q2WK
     Route: 041
     Dates: start: 20161123, end: 20170201
  6. FUROSEMIDE TEVA [Concomitant]
     Active Substance: FUROSEMIDE
     Indication: OEDEMA
     Dosage: 20 MG, QD
     Route: 048
     Dates: start: 20161026
  7. MINOMYCIN [Concomitant]
     Active Substance: MINOCYCLINE HYDROCHLORIDE
     Indication: PROPHYLAXIS
     Dosage: 100 MG, BID
     Route: 048
     Dates: start: 20161026
  8. AMITIZA [Concomitant]
     Active Substance: LUBIPROSTONE
     Indication: CONSTIPATION
     Dosage: 24 UG, BID
     Route: 048
     Dates: start: 20161011
  9. FLUOROURACIL. [Suspect]
     Active Substance: FLUOROURACIL
     Dosage: 325 MG, Q2WK
     Route: 040
     Dates: start: 20161123, end: 20170201
  10. FLUOROURACIL. [Suspect]
     Active Substance: FLUOROURACIL
     Dosage: 325 MG, Q2WK
     Route: 040
     Dates: start: 20170301, end: 20170329
  11. CALCIUM LEVOFOLINATE [Suspect]
     Active Substance: LEVOLEUCOVORIN CALCIUM
     Dosage: 325 MG, Q2WK
     Route: 041
     Dates: start: 20161123, end: 20170201
  12. HALIZON [Concomitant]
     Active Substance: AMPHOTERICIN B
     Indication: ORAL CANDIDIASIS
     Dosage: 1 ML, TID
     Route: 048
     Dates: start: 20161221
  13. OXALIPLATIN. [Suspect]
     Active Substance: OXALIPLATIN
     Dosage: 105 MG, Q2WK
     Route: 041
     Dates: start: 20161123, end: 20170201
  14. CALCIUM LEVOFOLINATE [Suspect]
     Active Substance: LEVOLEUCOVORIN CALCIUM
     Dosage: 325 MG, Q2WK
     Route: 041
     Dates: start: 20170301, end: 20170329
  15. PANITUMUMAB [Suspect]
     Active Substance: PANITUMUMAB
     Dosage: 280 MG, Q2WK
     Route: 041
     Dates: start: 20170329, end: 20170329
  16. OXALIPLATIN. [Suspect]
     Active Substance: OXALIPLATIN
     Dosage: 105 MG, Q2WK
     Route: 041
     Dates: start: 20170301, end: 20170329
  17. FLUOROURACIL. [Suspect]
     Active Substance: FLUOROURACIL
     Indication: COLON CANCER
     Dosage: 650 MG, Q2WK
     Route: 040
     Dates: start: 20161019, end: 20161019
  18. FLUOROURACIL. [Suspect]
     Active Substance: FLUOROURACIL
     Dosage: 3925 MG, Q2WK
     Route: 041
     Dates: start: 20161019, end: 20161019
  19. FLUOROURACIL. [Suspect]
     Active Substance: FLUOROURACIL
     Dosage: 3270 MG, Q2WK
     Route: 041
     Dates: start: 20170301, end: 20170329
  20. CALONAL [Concomitant]
     Active Substance: ACETAMINOPHEN
     Indication: CANCER PAIN
     Dosage: 500 MG, QID
     Route: 048
     Dates: start: 20161031
  21. OXINORM [Concomitant]
     Indication: CANCER PAIN
     Dosage: 2.5 MG, UNK
     Route: 048
     Dates: start: 20161028
  22. OXYCODONE [Concomitant]
     Active Substance: OXYCODONE
     Indication: CANCER PAIN
     Dosage: 7.5 MG, BID
     Route: 048
     Dates: start: 20161031
  23. DABIGATRAN ETEXILATE [Suspect]
     Active Substance: DABIGATRAN ETEXILATE
     Indication: CEREBROVASCULAR ACCIDENT PROPHYLAXIS
     Dosage: 150 MG, BID
     Route: 048
     Dates: start: 20161026, end: 20161224
  24. DENOTAS [Concomitant]
     Active Substance: CALCIUM CARBONATE\CHOLECALCIFEROL\MAGNESIUM CARBONATE
     Indication: METASTASES TO BONE
     Dosage: 2 DF, QD
     Route: 048
     Dates: start: 20161021

REACTIONS (10)
  - Pneumonia [Fatal]
  - Haemorrhoidal haemorrhage [Recovered/Resolved]
  - Fatigue [Recovered/Resolved]
  - Neutrophil count decreased [Recovered/Resolved]
  - Dermatitis acneiform [Recovered/Resolved]
  - Anaemia [Recovered/Resolved]
  - White blood cell count decreased [Fatal]
  - Stomatitis [Recovered/Resolved]
  - Diarrhoea [Recovered/Resolved]
  - Proteinuria [Not Recovered/Not Resolved]

NARRATIVE: CASE EVENT DATE: 20161223
